FAERS Safety Report 5842783-X (Version None)
Quarter: 2008Q3

REPORT INFORMATION
  Report Type: 
  Country: None (occurrence: None)
  Receive Date: 20080811
  Receipt Date: 20080724
  Transmission Date: 20090109
  Serious: Yes (Hospitalization)
  Sender: FDA-Public Use
  Company Number: 2008BI018833

PATIENT
  Age: 41 Year
  Sex: Female

DRUGS (2)
  1. TYSABRI [Suspect]
     Indication: MULTIPLE SCLEROSIS
     Dosage: 300 MG, QM, IV
     Route: 042
     Dates: start: 20061128
  2. AVONEX [Concomitant]

REACTIONS (1)
  - PROGRESSIVE MULTIPLE SCLEROSIS [None]
